FAERS Safety Report 24633938 (Version 3)
Quarter: 2025Q1

REPORT INFORMATION
  Report Type: Report from Study
  Country: US (occurrence: US)
  Receive Date: 20241118
  Receipt Date: 20250211
  Transmission Date: 20250408
  Serious: No
  Sender: SUNOVION
  Company Number: US-SUMITOMO PHARMA SWITZERLAND GMBH-2024SPA005013

PATIENT

DRUGS (2)
  1. ORGOVYX [Suspect]
     Active Substance: RELUGOLIX
     Indication: Prostate cancer
     Dosage: 360 MG, SINGLE
     Route: 048
     Dates: start: 20241026, end: 20241026
  2. ORGOVYX [Suspect]
     Active Substance: RELUGOLIX
     Dosage: 120 MG, QD
     Route: 048
     Dates: start: 20241027

REACTIONS (8)
  - Pneumaturia [Unknown]
  - Dysuria [Unknown]
  - Pollakiuria [Unknown]
  - Anal incontinence [Unknown]
  - Infrequent bowel movements [Unknown]
  - Hot flush [Unknown]
  - Hyperhidrosis [Unknown]
  - Fatigue [Unknown]
